FAERS Safety Report 5010108-8 (Version None)
Quarter: 2006Q2

REPORT INFORMATION
  Report Type: 
  Country: None (occurrence: None)
  Receive Date: 20060523
  Receipt Date: 20060515
  Transmission Date: 20061013
  Serious: Yes (Hospitalization)
  Sender: FDA-Public Use
  Company Number: 0600263US

PATIENT
  Age: 80 Year
  Sex: Female

DRUGS (6)
  1. ZORAC (TAZAROTENE) GEL [Suspect]
     Indication: HYPERKERATOSIS
     Dosage: QD, CUTANEOUS
     Route: 003
     Dates: start: 20060118, end: 20060121
  2. PREVISCAN /00789001/ (FLUINDIONE) [Concomitant]
  3. SOTALOL HCL [Concomitant]
  4. SERECOR (HYDROQUINIDINE HYDROCHLORIDE) [Concomitant]
  5. CELEBREX [Concomitant]
  6. AMLODIPINE BESYLATE [Concomitant]

REACTIONS (6)
  - BLISTER [None]
  - PRURITUS [None]
  - RASH [None]
  - SKIN EXFOLIATION [None]
  - SKIN INFLAMMATION [None]
  - SKIN LESION [None]
